FAERS Safety Report 10249282 (Version 2)
Quarter: 2014Q2

REPORT INFORMATION
  Report Type: Spontaneous
  Country: ES (occurrence: ES)
  Receive Date: 20140620
  Receipt Date: 20140620
  Transmission Date: 20141212
  Serious: Yes (Other)
  Sender: FDA-Public Use
  Company Number: PHBS2005ES17241

PATIENT
  Age: 60 Year
  Sex: Female

DRUGS (3)
  1. TIMOLOL [Suspect]
     Indication: GLAUCOMA
     Route: 047
  2. DORZOLAMIDE [Suspect]
     Indication: GLAUCOMA
     Route: 047
  3. LATANOPROST [Suspect]
     Indication: GLAUCOMA
     Route: 047

REACTIONS (14)
  - Toxic epidermal necrolysis [Recovered/Resolved]
  - Pyrexia [Recovered/Resolved]
  - Face oedema [Recovered/Resolved]
  - Erythema [Recovered/Resolved]
  - Skin exfoliation [Recovered/Resolved]
  - Conjunctivitis [Recovered/Resolved]
  - Conjunctival erosion [Recovered/Resolved]
  - Genital erythema [Recovered/Resolved]
  - Leukopenia [Recovered/Resolved]
  - Neutropenia [Recovered/Resolved]
  - Lymphopenia [Recovered/Resolved]
  - Hypoalbuminaemia [Recovered/Resolved]
  - Liver function test abnormal [Recovered/Resolved]
  - Oral mucosa erosion [Recovered/Resolved]
